FAERS Safety Report 5759264-4 (Version None)
Quarter: 2008Q2

REPORT INFORMATION
  Report Type: 
  Country: None (occurrence: None)
  Receive Date: 20080604
  Receipt Date: 20080527
  Transmission Date: 20081010
  Serious: Yes (Other)
  Sender: FDA-Public Use
  Company Number: US-MERCK-0804USA05232

PATIENT
  Age: 43 Year
  Sex: Female
  Weight: 48 kg

DRUGS (6)
  1. SINGULAIR [Suspect]
     Indication: RHINITIS ALLERGIC
     Route: 048
     Dates: start: 20080424, end: 20080428
  2. SINGULAIR [Suspect]
     Route: 048
     Dates: start: 20070626, end: 20080423
  3. ZYRTEC [Concomitant]
     Route: 065
  4. NASACORT [Concomitant]
     Route: 065
  5. YASMIN [Concomitant]
     Route: 065
  6. SYNTHROID [Concomitant]
     Route: 065

REACTIONS (3)
  - COUGH [None]
  - DRUG DOSE OMISSION [None]
  - GALLBLADDER DISORDER [None]
